FAERS Safety Report 17805313 (Version 1)
Quarter: 2020Q2

REPORT INFORMATION
  Report Type: Spontaneous
  Country: US (occurrence: US)
  Receive Date: 20200519
  Receipt Date: 20200519
  Transmission Date: 20200714
  Serious: No
  Sender: FDA-Public Use
  Company Number: US-GILEAD-2020-0463247

PATIENT
  Age: 64 Year
  Sex: Male

DRUGS (7)
  1. YEAST EXTRACT [Concomitant]
     Active Substance: YEAST
  2. TAMSULOSIN HYDROCHLORIDE. [Concomitant]
     Active Substance: TAMSULOSIN HYDROCHLORIDE
  3. TADALAFIL. [Concomitant]
     Active Substance: TADALAFIL
  4. ASPIRIN (E.C.) [Concomitant]
     Active Substance: ASPIRIN
  5. BIKTARVY [Suspect]
     Active Substance: BICTEGRAVIR SODIUM\EMTRICITABINE\TENOFOVIR ALAFENAMIDE FUMARATE
     Indication: HIV INFECTION
     Dosage: 1 DOSAGE FORM, QD
     Route: 048
     Dates: start: 202004
  6. FINASTERIDE. [Concomitant]
     Active Substance: FINASTERIDE
  7. ZOLPIDEM [Concomitant]
     Active Substance: ZOLPIDEM TARTRATE

REACTIONS (1)
  - Product dose omission [Unknown]
